FAERS Safety Report 8505902-2 (Version None)
Quarter: 2012Q3

REPORT INFORMATION
  Report Type: 
  Country: None (occurrence: None)
  Receive Date: 20120712
  Receipt Date: 20120703
  Transmission Date: 20120928
  Serious: Yes (Hospitalization)
  Sender: FDA-Public Use
  Company Number: JP-VERTEX PHARMACEUTICALS INC.-AE-2012-009997

PATIENT
  Age: 63 Year
  Sex: Female

DRUGS (4)
  1. TELAVIC (TELAPREVIR) [Suspect]
     Indication: HEPATITIS C
     Route: 048
     Dates: start: 20120510, end: 20120522
  2. RIBAVIRIN [Concomitant]
     Indication: HEPATITIS C
     Route: 048
     Dates: start: 20120510, end: 20120607
  3. PEGINTEREFRON ALFA-2B [Concomitant]
     Route: 058
     Dates: start: 20120510
  4. RIBAVIRIN [Concomitant]
     Route: 048
     Dates: start: 20120608

REACTIONS (2)
  - RENAL DISORDER [None]
  - DECREASED APPETITE [None]
